FAERS Safety Report 6180693-1 (Version None)
Quarter: 2009Q2

REPORT INFORMATION
  Report Type: 
  Country: None (occurrence: None)
  Receive Date: 20090506
  Receipt Date: 20090428
  Transmission Date: 20091009
  Serious: Yes (Hospitalization)
  Sender: FDA-Public Use
  Company Number: CA-JNJFOC-20090202446

PATIENT
  Sex: Male
  Weight: 63 kg

DRUGS (4)
  1. REMICADE [Suspect]
     Indication: ANKYLOSING SPONDYLITIS
     Route: 042
  2. NAPROXEN [Concomitant]
  3. SYNTHROID [Concomitant]
     Route: 048
  4. INDOMETHACIN [Concomitant]

REACTIONS (1)
  - HIP ARTHROPLASTY [None]
